FAERS Safety Report 10704116 (Version 1)
Quarter: 2015Q1

REPORT INFORMATION
  Report Type: Spontaneous
  Country: BR (occurrence: BR)
  Receive Date: 20150112
  Receipt Date: 20150112
  Transmission Date: 20150721
  Serious: Yes (Other)
  Sender: FDA-Public Use
  Company Number: BR-SA-2015SA002201

PATIENT
  Sex: Female
  Weight: 75 kg

DRUGS (9)
  1. DEVICE NOS [Concomitant]
     Active Substance: DEVICE
     Indication: DEVICE THERAPY
  2. RASILEZ [Concomitant]
     Active Substance: ALISKIREN
     Indication: BLOOD PRESSURE
     Dosage: STARTED LONG TIME AGO
  3. ACETYLSALICYLIC ACID [Concomitant]
     Active Substance: ASPIRIN
     Indication: ANTICOAGULANT THERAPY
     Dosage: STARTED MORE THAN 1 YEAR AGO
  4. LASIX [Concomitant]
     Active Substance: FUROSEMIDE
     Indication: DIURETIC THERAPY
     Dosage: STARTED LONG TIME AGO
  5. LANTUS [Suspect]
     Active Substance: INSULIN GLARGINE
     Indication: TYPE 2 DIABETES MELLITUS
     Dosage: PRODUCT STARTET:  APPROX 7 YEARS AGO
     Route: 065
  6. ATENOLOL. [Concomitant]
     Active Substance: ATENOLOL
     Indication: BLOOD PRESSURE
  7. HUMAN GROWTH HORMONE, RECOMBINANT [Concomitant]
     Active Substance: SOMATROPIN
     Indication: RENAL DISORDER
     Dosage: STARTED APPROX 8 MONTHS AGO, 2 BOTTLES WEEKLY
     Dates: start: 2014
  8. ALLOPURINOL. [Concomitant]
     Active Substance: ALLOPURINOL
     Indication: BLOOD URIC ACID
     Dosage: STARTED LONG TIME AGO
  9. SYNTHROID [Concomitant]
     Active Substance: LEVOTHYROXINE SODIUM
     Indication: THYROID DISORDER
     Dosage: STARTED LONG TIME AGO

REACTIONS (6)
  - Renal disorder [Recovering/Resolving]
  - Walking aid user [Not Recovered/Not Resolved]
  - Wound [Not Recovered/Not Resolved]
  - Diabetic foot [Recovered/Resolved]
  - Unevaluable event [Recovering/Resolving]
  - Oedema peripheral [Recovering/Resolving]
